FAERS Safety Report 8244954-4 (Version None)
Quarter: 2012Q1

REPORT INFORMATION
  Report Type: 
  Country: None (occurrence: None)
  Receive Date: 20120329
  Receipt Date: 20111012
  Transmission Date: 20120608
  Serious: Yes (Death)
  Sender: FDA-Public Use
  Company Number: US-MYLANLABS-2011S1021366

PATIENT
  Age: 47 Year
  Sex: Female

DRUGS (3)
  1. FENTANYL-100 [Suspect]
     Indication: PAIN
     Route: 062
     Dates: start: 20080701, end: 20080701
  2. MUSCLE RELAXANTS [Concomitant]
  3. PERCOCET [Concomitant]

REACTIONS (1)
  - OVERDOSE [None]
